FAERS Safety Report 5378438-8 (Version None)
Quarter: 2007Q2

REPORT INFORMATION
  Report Type: 
  Country: None (occurrence: None)
  Receive Date: 20070530
  Receipt Date: 20070224
  Transmission Date: 20071010
  Serious: No
  Sender: FDA-Public Use
  Company Number: 2007PV030679

PATIENT
  Age: 55 Year
  Sex: Female

DRUGS (1)
  1. BYETTA [Suspect]
     Indication: DIABETES MELLITUS NON-INSULIN-DEPENDENT
     Dosage: 5 MCG;BID;SC
     Route: 058
     Dates: start: 20070217

REACTIONS (6)
  - DECREASED APPETITE [None]
  - FEELING COLD [None]
  - FLUSHING [None]
  - NAUSEA [None]
  - PRURITUS GENERALISED [None]
  - WEIGHT DECREASED [None]
